FAERS Safety Report 24084179 (Version 9)
Quarter: 2025Q1

REPORT INFORMATION
  Report Type: Spontaneous
  Country: US (occurrence: US)
  Receive Date: 20240712
  Receipt Date: 20250107
  Transmission Date: 20250409
  Serious: No
  Sender: PFIZER
  Company Number: US-PFIZER INC-202400209288

PATIENT
  Age: 9 Year
  Sex: Male
  Weight: 40.2 kg

DRUGS (4)
  1. GENOTROPIN [Suspect]
     Active Substance: SOMATROPIN
     Indication: Short stature
     Route: 058
     Dates: start: 202408
  2. GENOTROPIN [Suspect]
     Active Substance: SOMATROPIN
     Dosage: 1.0 MG - 7 DAYS PER WEEK
     Route: 058
  3. GENOTROPIN [Suspect]
     Active Substance: SOMATROPIN
     Dosage: 1 MG, DAILY
  4. GENOTROPIN [Suspect]
     Active Substance: SOMATROPIN

REACTIONS (6)
  - Device information output issue [Unknown]
  - Device use error [Unknown]
  - Device physical property issue [Unknown]
  - Device defective [Unknown]
  - Device mechanical issue [Unknown]
  - Drug dose omission by device [Unknown]

NARRATIVE: CASE EVENT DATE: 20240705
